FAERS Safety Report 5242767-9 (Version None)
Quarter: 2007Q1

REPORT INFORMATION
  Report Type: 
  Country: None (occurrence: None)
  Receive Date: 20070214
  Receipt Date: 20070207
  Transmission Date: 20070707
  Serious: Yes (Other)
  Sender: FDA-Public Use
  Company Number: 2007SP002371

PATIENT
  Age: 13 Year
  Sex: Male

DRUGS (2)
  1. CELESTAMINE TAB [Suspect]
     Indication: URTICARIA
     Dosage: PO
     Route: 048
  2. ALLEGRA (CON.) [Concomitant]

REACTIONS (1)
  - BLOOD CREATINE PHOSPHOKINASE INCREASED [None]
